FAERS Safety Report 14494483 (Version 1)
Quarter: 2018Q1

REPORT INFORMATION
  Report Type: Spontaneous
  Country: US (occurrence: US)
  Receive Date: 20180205
  Receipt Date: 20180205
  Transmission Date: 20180509
  Serious: Yes (Death)
  Sender: FDA-Public Use
  Company Number: None

PATIENT
  Age: 87 Year
  Sex: Female
  Weight: 119.7 kg

DRUGS (10)
  1. FUROSEMIDE. [Concomitant]
     Active Substance: FUROSEMIDE
  2. LORAZEPAM. [Concomitant]
     Active Substance: LORAZEPAM
  3. CYANOCOBALAMIN. [Concomitant]
     Active Substance: CYANOCOBALAMIN
  4. CHOLECALCIFEROL [Concomitant]
     Active Substance: CHOLECALCIFEROL
  5. WARFARIN [Suspect]
     Active Substance: WARFARIN
     Indication: ATRIAL FIBRILLATION
     Dosage: ?          OTHER FREQUENCY:PER INR;?
     Route: 048
  6. ATENOLOL. [Concomitant]
     Active Substance: ATENOLOL
  7. ALLOPURINOL. [Concomitant]
     Active Substance: ALLOPURINOL
  8. ACETAMINOPHEN. [Concomitant]
     Active Substance: ACETAMINOPHEN
  9. BISACODYL. [Concomitant]
     Active Substance: BISACODYL
  10. COLCHICINE-PROBENECID [Concomitant]

REACTIONS (4)
  - Skin ulcer [None]
  - Pseudomonal sepsis [None]
  - Cellulitis [None]
  - Calciphylaxis [None]

NARRATIVE: CASE EVENT DATE: 20170803
